FAERS Safety Report 19989254 (Version 1)
Quarter: 2021Q4

REPORT INFORMATION
  Report Type: Spontaneous
  Country: NL (occurrence: NL)
  Receive Date: 20211025
  Receipt Date: 20211025
  Transmission Date: 20220303
  Serious: Yes (Other)
  Sender: FDA-Public Use
  Company Number: NL-002147023-NVSC2021NL164692

PATIENT
  Age: 59 Year
  Sex: Female
  Weight: 73 kg

DRUGS (3)
  1. METOPROLOL [Suspect]
     Active Substance: METOPROLOL
     Indication: Product used for unknown indication
     Dosage: UNK
     Route: 065
     Dates: start: 202104
  2. METOPROLOL SUCCINATE [Suspect]
     Active Substance: METOPROLOL SUCCINATE
     Indication: Atrial tachycardia
     Dosage: 50 MILLIGRAM, ONCE A DAY
     Route: 048
     Dates: start: 20210412
  3. FLECAINIDE [Concomitant]
     Active Substance: FLECAINIDE
     Indication: Product used for unknown indication
     Dosage: 1 DOSAGE FORM
     Route: 065
     Dates: start: 202107

REACTIONS (6)
  - Palpitations [Recovered/Resolved]
  - Arrhythmia [Unknown]
  - Heart rate irregular [Unknown]
  - Nervousness [Unknown]
  - Tension [Unknown]
  - Tachycardia [Unknown]

NARRATIVE: CASE EVENT DATE: 20210506
